FAERS Safety Report 4310064-1 (Version None)
Quarter: 2004Q1

REPORT INFORMATION
  Report Type: 
  Country: None (occurrence: None)
  Receive Date: 20040301
  Receipt Date: 20031223
  Transmission Date: 20041129
  Serious: No
  Sender: FDA-Public Use
  Company Number: WAES0308USA02151

PATIENT
  Age: 43 Year
  Sex: Male

DRUGS (5)
  1. ZETIA [Suspect]
     Dosage: PO
     Route: 048
     Dates: start: 20030615, end: 20030818
  2. LIPITOR [Concomitant]
  3. NIASPAN [Concomitant]
  4. PLAVIX [Concomitant]
  5. DILTIAZEM HYDROCHLORIDE [Concomitant]

REACTIONS (4)
  - BLOOD CREATINE PHOSPHOKINASE INCREASED [None]
  - EOSINOPHIL COUNT INCREASED [None]
  - RASH [None]
  - SWELLING [None]
